FAERS Safety Report 8833370 (Version 1)
Quarter: 2012Q4

REPORT INFORMATION
  Report Type: 
  Country: DE (occurrence: DE)
  Receive Date: 20121010
  Receipt Date: 20121010
  Transmission Date: 20130627
  Serious: Yes (Hospitalization)
  Sender: FDA-Public Use
  Company Number: DE-NAPPMUNDI-DEU_2006_0002662

PATIENT
  Age: 55 Year
  Sex: Female

DRUGS (5)
  1. OXYGESIC [Suspect]
     Indication: PAIN
     Dosage: 200 mg, daily
     Route: 048
  2. FALITHROM ^HEXAL^ [Interacting]
     Indication: PRODUCT USED FOR UNKNOWN INDICATION
     Route: 048
  3. TORASEMIDE [Concomitant]
  4. HEPARIN [Concomitant]
  5. CORTICOSTEROIDS [Concomitant]

REACTIONS (2)
  - Drug interaction [Recovered/Resolved]
  - International normalised ratio increased [Recovered/Resolved]
